FAERS Safety Report 4788454-2 (Version None)
Quarter: 2005Q3

REPORT INFORMATION
  Report Type: 
  Country: None (occurrence: None)
  Receive Date: 20050915
  Receipt Date: 20040928
  Transmission Date: 20060218
  Serious: Yes (Hospitalization, Other)
  Sender: FDA-Public Use
  Company Number: 2004071386

PATIENT
  Age: 60 Year
  Sex: Female

DRUGS (15)
  1. GLUCOTROL [Suspect]
     Indication: DIABETES MELLITUS
     Dosage: (1 IN 1 D), ORAL
     Route: 048
     Dates: start: 20040407
  2. DOCETAXEL (DOCETAXEL) [Concomitant]
  3. POTASSIUM CHLORIDE [Concomitant]
  4. DARBEPOETIN ALFA (DARBEPOETIN ALFA) [Concomitant]
  5. PAMIDRONATE DISODIUM [Concomitant]
  6. VICODIN [Concomitant]
  7. RANITIDINE HYDROCHLORIDE [Concomitant]
  8. MODAFINIL [Concomitant]
  9. METHYLDOPA [Concomitant]
  10. GLATIRAMER ACETATE (GLATIRAMER ACETATE) [Concomitant]
  11. OXYBUTYNIN CHLORIDE [Concomitant]
  12. TRAZODONE HCL [Concomitant]
  13. VERAPAMIL [Concomitant]
  14. CLONAZEPAM [Concomitant]
  15. MAGNESIUM OXIDE (MAGNESIUM OXIDE) [Concomitant]

REACTIONS (2)
  - HYPOGLYCAEMIA [None]
  - OVERDOSE [None]
